FAERS Safety Report 9179514 (Version 2)
Quarter: 2013Q2

REPORT INFORMATION
  Report Type: Report from Study
  Country: BE (occurrence: BE)
  Receive Date: 20121029
  Receipt Date: 20130612
  Transmission Date: 20140414
  Serious: Yes (Hospitalization)
  Sender: FDA-Public Use
  Company Number: BE-JNJFOC-20121002554

PATIENT
  Age: 53 Year
  Sex: Female
  Weight: 56.5 kg

DRUGS (5)
  1. REMICADE [Suspect]
     Indication: COLITIS ULCERATIVE
     Route: 042
     Dates: start: 20110916
  2. COLITOFALK [Concomitant]
     Indication: COLITIS ULCERATIVE
     Dates: start: 2005
  3. CLEXANE [Concomitant]
  4. PRAREDUCT [Concomitant]
  5. CARDIO ASPIRINE [Concomitant]

REACTIONS (1)
  - Intermittent claudication [Recovered/Resolved]
